FAERS Safety Report 4389547-4 (Version None)
Quarter: 2004Q2

REPORT INFORMATION
  Report Type: 
  Country: None (occurrence: None)
  Receive Date: 20040629
  Receipt Date: 20040212
  Transmission Date: 20050107
  Serious: Yes (Hospitalization)
  Sender: FDA-Public Use
  Company Number: NSADSS2003022912

PATIENT
  Age: 60 Year
  Sex: Female

DRUGS (12)
  1. DURAGESIC [Suspect]
     Indication: PAIN
     Dosage: 25 UG/HR, TRANSDERMAL
     Route: 062
  2. PREMARIN [Concomitant]
  3. LIPITOR (AOTRAVASTATIN) [Concomitant]
  4. SYNTHROID [Concomitant]
  5. CLARITIN [Concomitant]
  6. SERZONE [Concomitant]
  7. PREVACID [Concomitant]
  8. METAMUCIL (PSYLLIUM HYROPHILIC MUCILLOID) [Concomitant]
  9. ELAVIL [Concomitant]
  10. OXYCONTIN [Concomitant]
  11. ATIVAN [Concomitant]
  12. VALIUM [Concomitant]

REACTIONS (1)
  - BACK PAIN [None]
